FAERS Safety Report 5904579-X (Version None)
Quarter: 2008Q4

REPORT INFORMATION
  Report Type: 
  Country: None (occurrence: None)
  Receive Date: 20081001
  Receipt Date: 20080918
  Transmission Date: 20090506
  Serious: Yes (Other)
  Sender: FDA-Public Use
  Company Number: BR-ELI_LILLY_AND_COMPANY-BR200809004374

PATIENT
  Sex: Female
  Weight: 47 kg

DRUGS (4)
  1. FORTEO [Suspect]
     Indication: OSTEOPOROSIS
     Dosage: 20 UG, UNKNOWN
     Route: 058
     Dates: start: 20071201
  2. CORTICOSTEROIDS [Concomitant]
     Indication: ARTHRITIS
     Dosage: 5 MG, EACH MORNING
     Route: 048
     Dates: start: 20040101
  3. CORTICOSTEROIDS [Concomitant]
     Dosage: 2.5 MG, EACH EVENING
     Route: 048
     Dates: start: 20040101
  4. GLIMEPIRIDE [Concomitant]
     Dosage: 1 MG, DAILY (1/D)
     Route: 048
     Dates: start: 20050101

REACTIONS (4)
  - ABDOMINAL PAIN [None]
  - CHOLELITHIASIS [None]
  - GASTRIC DISORDER [None]
  - WEIGHT DECREASED [None]
